FAERS Safety Report 5621332-5 (Version None)
Quarter: 2008Q1

REPORT INFORMATION
  Report Type: 
  Country: None (occurrence: None)
  Receive Date: 20080211
  Receipt Date: 20080204
  Transmission Date: 20080703
  Serious: Yes (Other)
  Sender: FDA-Public Use
  Company Number: US-BAYER-200712995BWH

PATIENT
  Age: 76 Year
  Sex: Female

DRUGS (1)
  1. AVELOX [Suspect]
     Indication: SINUS CONGESTION
     Route: 048
     Dates: start: 20070701

REACTIONS (7)
  - ARTHRITIS [None]
  - INSOMNIA [None]
  - INTERVERTEBRAL DISC DEGENERATION [None]
  - MOBILITY DECREASED [None]
  - MUSCULOSKELETAL DISCOMFORT [None]
  - MUSCULOSKELETAL STIFFNESS [None]
  - PROCEDURAL PAIN [None]
